FAERS Safety Report 16366464 (Version 1)
Quarter: 2019Q2

REPORT INFORMATION
  Report Type: Spontaneous
  Country: FR (occurrence: FR)
  Receive Date: 20190529
  Receipt Date: 20190529
  Transmission Date: 20190711
  Serious: Yes (Hospitalization)
  Sender: FDA-Public Use
  Company Number: FR-TEVA-2019-FR-1055323

PATIENT
  Age: 51 Year
  Sex: Female
  Weight: 85.3 kg

DRUGS (10)
  1. SURGESTONE 0,500 MG, COMPRIM? [Concomitant]
  2. VOLTARENE (DICLOFENAC SODIUM) [Concomitant]
     Active Substance: DICLOFENAC SODIUM
  3. DOLIPRANE [Concomitant]
     Active Substance: ACETAMINOPHEN
  4. OMEPRAZOLE. [Concomitant]
     Active Substance: OMEPRAZOLE
  5. DEXERYL [Concomitant]
  6. SOTALOL (CHLORHYDRATE DE) [Concomitant]
     Active Substance: SOTALOL
  7. VASTAREL [Concomitant]
     Active Substance: TRIMETAZIDINE DIHYDROCHLORIDE
  8. PACLITAXEL. [Suspect]
     Active Substance: PACLITAXEL
     Indication: BREAST CANCER
     Route: 041
     Dates: start: 20190314, end: 20190329
  9. SPASFON [Concomitant]
  10. DESLORATADINE. [Concomitant]
     Active Substance: DESLORATADINE

REACTIONS (1)
  - Acute pulmonary oedema [Recovered/Resolved]

NARRATIVE: CASE EVENT DATE: 20190328
